APPROVED DRUG PRODUCT: SUPPRELIN LA
Active Ingredient: HISTRELIN ACETATE
Strength: 50MG
Dosage Form/Route: IMPLANT;SUBCUTANEOUS
Application: N022058 | Product #001
Applicant: ENDO OPERATIONS LTD
Approved: May 3, 2007 | RLD: Yes | RS: Yes | Type: RX

PATENTS:
Patent 8062652 | Expires: Jun 16, 2026